FAERS Safety Report 11135810 (Version 1)
Quarter: 2015Q2

REPORT INFORMATION
  Report Type: Spontaneous
  Country: DE (occurrence: DE)
  Receive Date: 20150526
  Receipt Date: 20150526
  Transmission Date: 20150821
  Serious: Yes (Hospitalization)
  Sender: FDA-Public Use
  Company Number: DE-BAYER-2015-271810

PATIENT
  Sex: Female

DRUGS (2)
  1. AVALOX [Suspect]
     Active Substance: MOXIFLOXACIN HYDROCHLORIDE
     Indication: TUBERCULOSIS
     Dosage: UNK
     Route: 048
     Dates: start: 20140204, end: 20140909
  2. PANTOPRAZOLE [Concomitant]
     Active Substance: PANTOPRAZOLE SODIUM
     Indication: NAUSEA
     Dosage: DAILY DOSE 40 MG

REACTIONS (16)
  - Abdominal pain [Unknown]
  - Pain in extremity [Unknown]
  - Restless legs syndrome [Unknown]
  - Nausea [Unknown]
  - Hot flush [Unknown]
  - Musculoskeletal pain [Unknown]
  - Hyperhidrosis [Unknown]
  - Mucosal haemorrhage [Unknown]
  - Arthralgia [Not Recovered/Not Resolved]
  - Peripheral swelling [Unknown]
  - Skin exfoliation [Unknown]
  - Dyspnoea [Unknown]
  - Pain of skin [Unknown]
  - Vasodilatation [Unknown]
  - Foreign body sensation in eyes [Unknown]
  - Angle closure glaucoma [Unknown]
